FAERS Safety Report 17533449 (Version 1)
Quarter: 2020Q1

REPORT INFORMATION
  Report Type: Spontaneous
  Country: FR (occurrence: FR)
  Receive Date: 20200312
  Receipt Date: 20200312
  Transmission Date: 20200409
  Serious: Yes (Life-Threatening, Hospitalization, Congenital Anomaly)
  Sender: FDA-Public Use
  Company Number: FR-PFIZER INC-2020103101

PATIENT
  Sex: Male
  Weight: 2.3 kg

DRUGS (2)
  1. MIFEPRISTONE [Concomitant]
     Active Substance: MIFEPRISTONE
     Dosage: UNK
     Route: 064
  2. MISOPROSTOL. [Suspect]
     Active Substance: MISOPROSTOL
     Indication: ABORTION INDUCED
     Dosage: 2 DF, SINGLE
     Route: 064
     Dates: start: 201907

REACTIONS (4)
  - Congenital multiplex arthrogryposis [Not Recovered/Not Resolved]
  - Maternal exposure during pregnancy [Unknown]
  - Retrognathia [Not Recovered/Not Resolved]
  - Pulmonary hypoplasia [Not Recovered/Not Resolved]

NARRATIVE: CASE EVENT DATE: 201907
